FAERS Safety Report 8924800 (Version 1)
Quarter: 2012Q4

REPORT INFORMATION
  Report Type: Report from Study
  Country: CN (occurrence: CN)
  Receive Date: 20121126
  Receipt Date: 20121126
  Transmission Date: 20130627
  Serious: Yes (Death)
  Sender: FDA-Public Use
  Company Number: CN-ROCHE-1159085

PATIENT
  Sex: Female

DRUGS (3)
  1. MYCOPHENOLATE MOFETIL [Suspect]
     Indication: LIVER TRANSPLANT
     Route: 048
     Dates: start: 20110921, end: 201209
  2. TACROLIMUS [Concomitant]
     Indication: LIVER TRANSPLANT
  3. CORTICOSTEROID (UNK INGREDIENTS) [Concomitant]
     Indication: LIVER TRANSPLANT

REACTIONS (1)
  - Metastasis [Fatal]
